FAERS Safety Report 5103650-2 (Version None)
Quarter: 2006Q3

REPORT INFORMATION
  Report Type: 
  Country: None (occurrence: None)
  Receive Date: 20060913
  Receipt Date: 20060901
  Transmission Date: 20061208
  Serious: Yes (Hospitalization)
  Sender: FDA-Public Use
  Company Number: US-JNJFOC-20030904436

PATIENT
  Sex: Female
  Weight: 101.61 kg

DRUGS (20)
  1. RISPERDAL [Suspect]
     Dosage: AT BEDTIME
     Route: 048
  2. RISPERDAL [Suspect]
     Indication: MAJOR DEPRESSION
     Route: 048
  3. EFFEXOR XR [Concomitant]
     Route: 048
  4. EFFEXOR XR [Concomitant]
     Route: 048
  5. EFFEXOR XR [Concomitant]
     Route: 048
  6. EFFEXOR XR [Concomitant]
     Indication: MAJOR DEPRESSION
     Route: 048
  7. GLUCOTROL [Concomitant]
  8. ATENOLOL [Concomitant]
  9. VIOXX [Concomitant]
  10. LASIX [Concomitant]
  11. ZYRTEC [Concomitant]
  12. DIOVAN [Concomitant]
  13. VITAMINS WITH IRON [Concomitant]
  14. LIPITOR [Concomitant]
  15. GLUCOPHAGE [Concomitant]
  16. ENTERIC ASPIRIN [Concomitant]
  17. RANITIDINE HYDROCHLORIDE [Concomitant]
  18. GLUCOVANCE [Concomitant]
  19. MUCINEX [Concomitant]
  20. NAPROSYN [Concomitant]

REACTIONS (36)
  - ABDOMINAL DISTENSION [None]
  - ARTHRALGIA [None]
  - ASTHENIA [None]
  - BACK PAIN [None]
  - BLOOD GLUCOSE INCREASED [None]
  - CARPAL TUNNEL SYNDROME [None]
  - CHEST PAIN [None]
  - DIARRHOEA [None]
  - DIASTOLIC DYSFUNCTION [None]
  - DILATATION ATRIAL [None]
  - DYSPNOEA [None]
  - EAR PAIN [None]
  - EYE DISORDER [None]
  - EYE INFECTION [None]
  - EYE SWELLING [None]
  - FEELING HOT [None]
  - HAEMORRHOIDS [None]
  - HEADACHE [None]
  - IRON DEFICIENCY ANAEMIA [None]
  - MAMMOGRAM ABNORMAL [None]
  - MENORRHAGIA [None]
  - MITRAL VALVE PROLAPSE [None]
  - NOCTURIA [None]
  - OEDEMA PERIPHERAL [None]
  - PAIN IN EXTREMITY [None]
  - PHARYNGOLARYNGEAL PAIN [None]
  - POLLAKIURIA [None]
  - PULMONARY HYPERTENSION [None]
  - SINUS DISORDER [None]
  - SKIN LESION [None]
  - SYNCOPE VASOVAGAL [None]
  - TRICUSPID VALVE INCOMPETENCE [None]
  - URINE ANALYSIS ABNORMAL [None]
  - VENTRICULAR DYSFUNCTION [None]
  - VENTRICULAR HYPERTROPHY [None]
  - VISUAL ACUITY REDUCED [None]
